FAERS Safety Report 9164578 (Version 5)
Quarter: 2013Q2

REPORT INFORMATION
  Report Type: Report from Study
  Country: AR (occurrence: AR)
  Receive Date: 20130315
  Receipt Date: 20130527
  Transmission Date: 20140414
  Serious: Yes (Death, Other)
  Sender: FDA-Public Use
  Company Number: PHHY2013AR024747

PATIENT
  Sex: Female

DRUGS (2)
  1. GLIVEC [Suspect]
     Indication: GASTROINTESTINAL STROMAL TUMOUR
     Dosage: 400 MG, DAILY
     Route: 048
     Dates: start: 20050325
  2. GLIVEC [Suspect]
     Dosage: 400 MG, DAILY
     Route: 048

REACTIONS (4)
  - Metastases to central nervous system [Fatal]
  - Breast cancer [Unknown]
  - Second primary malignancy [Unknown]
  - Gastrointestinal disorder [Unknown]
